FAERS Safety Report 7624025-8 (Version None)
Quarter: 2011Q3

REPORT INFORMATION
  Report Type: 
  Country: None (occurrence: None)
  Receive Date: 20110720
  Receipt Date: 20110714
  Transmission Date: 20111222
  Serious: Yes (Life-Threatening, Hospitalization, Disabling)
  Sender: FDA-Public Use
  Company Number: GB-MERCK-1107GBR00066

PATIENT
  Age: 15 Year
  Sex: Female

DRUGS (3)
  1. FLUTICASONE PROPIONATE AND SALMETEROL XINAFOATE [Concomitant]
     Indication: ASTHMA
     Dosage: STRENGTH 125 MICROGRAM
     Route: 055
     Dates: start: 20101019
  2. ALBUTEROL [Concomitant]
     Indication: ASTHMA
     Route: 055
     Dates: start: 20101019
  3. SINGULAIR [Suspect]
     Indication: ASTHMA
     Route: 048
     Dates: start: 20110422, end: 20110620

REACTIONS (1)
  - ALLERGIC GRANULOMATOUS ANGIITIS [None]
